FAERS Safety Report 10885422 (Version 2)
Quarter: 2015Q2

REPORT INFORMATION
  Report Type: Report from Study
  Country: US (occurrence: None)
  Receive Date: 20150227
  Receipt Date: 20150522
  Transmission Date: 20150821
  Serious: Yes (Hospitalization)
  Sender: FDA-Public Use
  Company Number: 2015SGN00100

PATIENT
  Age: 73 Year
  Sex: Female
  Weight: 81.4 kg

DRUGS (24)
  1. ALERTEC (MODAFINIL) [Concomitant]
  2. BIOTENE (GLUCOSE OXIDASE, LACTOPEROXIDASE) [Concomitant]
  3. VORICONAZOLE. [Concomitant]
     Active Substance: VORICONAZOLE
  4. METOPROLOL (METOPROLOL TARTRATE) [Concomitant]
     Active Substance: METOPROLOL TARTRATE
  5. ACYCLOVIR (ACICLOVIR) (ACICLOVIR) [Concomitant]
     Active Substance: ACYCLOVIR
  6. COLACE [Concomitant]
     Active Substance: DOCUSATE SODIUM
  7. FLONASE (FLUTCASONE PROPIONATE) [Concomitant]
  8. NYSTATIN. [Concomitant]
     Active Substance: NYSTATIN
  9. VENTOLIN (SALBUTAMOL SULFATE) [Concomitant]
  10. VITAMIN D3 (VITAMIN D3) [Concomitant]
  11. CYCLOPHOSPHAMIDE (CYCLOPHOSPHAMIDE) INJECTION [Suspect]
     Active Substance: CYCLOPHOSPHAMIDE
     Indication: DIFFUSE LARGE B-CELL LYMPHOMA
     Dosage: 750 MG/M2, Q21D
     Route: 042
     Dates: start: 20141118, end: 20150115
  12. VINCRISTINE (VINCRISTINE) INJECTION [Suspect]
     Active Substance: VINCRISTINE
     Indication: DIFFUSE LARGE B-CELL LYMPHOMA
     Dosage: 1.4 MG/M2, Q21D
     Route: 042
     Dates: start: 20141118, end: 20150115
  13. PREDNISONE (PREDNISONE) ORAL [Suspect]
     Active Substance: PREDNISONE
     Indication: DIFFUSE LARGE B-CELL LYMPHOMA
     Dosage: 100 MG, QCYCLE
     Route: 048
     Dates: start: 20141118, end: 20150119
  14. PERCOCET (OXYCODONE HYDROCHLORIDE, PARACETAMOL) [Concomitant]
  15. TRAMADOL (TRAMADOL HYDROCHLORIDE) [Concomitant]
     Active Substance: TRAMADOL HYDROCHLORIDE
  16. VITAMIN B12 (HYDROXOCOBALAMIN) [Concomitant]
  17. DOXORUBICIN (DOXORUBICIN) INJECTION [Suspect]
     Active Substance: DOXORUBICIN
     Indication: DIFFUSE LARGE B-CELL LYMPHOMA
     Dosage: 50 MG/M2, Q21D
     Route: 042
     Dates: start: 20141118, end: 20150115
  18. RITUXIMAB (RITUXIMAB) INJECTION [Suspect]
     Active Substance: RITUXIMAB
     Indication: DIFFUSE LARGE B-CELL LYMPHOMA
     Dosage: 375 MG/M2, Q21D
     Route: 042
     Dates: start: 20141118, end: 20150115
  19. BRENTUXIMAB VEDOTIN (BRENTUXIMAB VEDOTIN) INJECTION [Suspect]
     Active Substance: BRENTUXIMAB VEDOTIN
     Indication: DIFFUSE LARGE B-CELL LYMPHOMA
     Dosage: 1.2 MG/KG, Q21D
     Route: 042
     Dates: start: 20141118, end: 20150115
  20. SYMBICORT [Concomitant]
     Active Substance: BUDESONIDE\FORMOTEROL FUMARATE DIHYDRATE
  21. ALLOPURINOL. [Concomitant]
     Active Substance: ALLOPURINOL
  22. ALPRAZOLAM. [Concomitant]
     Active Substance: ALPRAZOLAM
  23. NEXIUM (ESOMEPRAZOLE MGANESIUM) [Concomitant]
  24. ZOFRAN (ONDANSETRON HYDROCHLORIDE) [Concomitant]

REACTIONS (7)
  - Neutropenia [None]
  - Pantoea agglomerans test positive [None]
  - Haematocrit decreased [None]
  - Haemoglobin decreased [None]
  - Sepsis [None]
  - Platelet count decreased [None]
  - Pantoea agglomerans infection [None]

NARRATIVE: CASE EVENT DATE: 20150122
